FAERS Safety Report 8919942 (Version 2)
Quarter: 2013Q1

REPORT INFORMATION
  Report Type: Spontaneous
  Country: US (occurrence: US)
  Receive Date: 20121121
  Receipt Date: 20130101
  Transmission Date: 20140127
  Serious: Yes (Other)
  Sender: FDA-Public Use
  Company Number: US-AMGEN-USASP2012073919

PATIENT
  Sex: Male

DRUGS (5)
  1. PROCRIT [Suspect]
     Indication: NEPHROGENIC ANAEMIA
     Dosage: 40000 UNIT, QWK
     Route: 058
     Dates: start: 20100308, end: 201009
  2. PROCRIT [Suspect]
     Indication: PLATELET COUNT DECREASED
  3. PEG-INTRON [Concomitant]
     Indication: HEPATITIS C
     Dosage: UNK
     Dates: start: 20100108, end: 201008
  4. RIBAVIRIN [Concomitant]
     Indication: HEPATITIS C
     Dosage: UNK
     Dates: start: 20100108, end: 201008
  5. SYNTHROID [Concomitant]
     Indication: HYPOTHYROIDISM
     Dosage: UNK

REACTIONS (4)
  - Internal injury [Unknown]
  - Idiopathic pulmonary fibrosis [Not Recovered/Not Resolved]
  - Incisional hernia repair [Unknown]
  - Liver transplant [Unknown]
